FAERS Safety Report 4941166-4 (Version None)
Quarter: 2006Q1

REPORT INFORMATION
  Report Type: 
  Country: None (occurrence: None)
  Receive Date: 20060310
  Receipt Date: 20060310
  Transmission Date: 20060701
  Serious: Yes (Hospitalization)
  Sender: FDA-Public Use
  Company Number: None

PATIENT
  Sex: Male
  Weight: 72 kg

DRUGS (3)
  1. BORTEZOMIB (MILLENNIUM) [Suspect]
     Indication: WALDENSTROM'S MACROGLOBULINAEMIA
     Dosage: 2.6 MG IV
     Route: 042
     Dates: start: 20060116, end: 20060306
  2. DEXAMETHASONE TAB [Suspect]
     Indication: WALDENSTROM'S MACROGLOBULINAEMIA
     Dosage: 40 MG IV
     Route: 042
     Dates: start: 20050116, end: 20060306
  3. RITUXIMAB [Concomitant]

REACTIONS (2)
  - PNEUMONIA [None]
  - VOMITING [None]
